FAERS Safety Report 6225737-3 (Version None)
Quarter: 2009Q2

REPORT INFORMATION
  Report Type: 
  Country: None (occurrence: None)
  Receive Date: 20090612
  Receipt Date: 20090501
  Transmission Date: 20091009
  Serious: No
  Sender: FDA-Public Use
  Company Number: US-ABBOTT-09P-163-0571193-00

PATIENT
  Sex: Female
  Weight: 91.254 kg

DRUGS (2)
  1. HUMIRA [Suspect]
     Indication: PSORIASIS
     Dates: start: 20090312
  2. VANOS [Concomitant]
     Indication: DRUG USE FOR UNKNOWN INDICATION
     Dosage: APPLY TO AFFECTED AREAS TWICE A DAY
     Route: 061

REACTIONS (1)
  - INJECTION SITE IRRITATION [None]
